FAERS Safety Report 13579478 (Version 1)
Quarter: 2017Q2

REPORT INFORMATION
  Report Type: Spontaneous
  Country: US (occurrence: US)
  Receive Date: 20170525
  Receipt Date: 20170525
  Transmission Date: 20170830
  Serious: Yes (Other)
  Sender: FDA-Public Use
  Company Number: US-LPDUSPRD-20170682

PATIENT
  Age: 2 Year
  Sex: Male

DRUGS (1)
  1. DEXAMETHASONE SODIUM PHOSPHATE INJECTION, USP (4901-25) [Suspect]
     Active Substance: DEXAMETHASONE SODIUM PHOSPHATE
     Dosage: 6 MG/M2/DAY
     Route: 065

REACTIONS (5)
  - Hypervigilance [Recovered/Resolved]
  - Crying [Recovered/Resolved]
  - Intentional self-injury [Unknown]
  - Food aversion [Recovered/Resolved]
  - Insomnia [Recovered/Resolved]
